FAERS Safety Report 5414001-8 (Version None)
Quarter: 2007Q3

REPORT INFORMATION
  Report Type: 
  Country: None (occurrence: None)
  Receive Date: 20070814
  Receipt Date: 20070802
  Transmission Date: 20080115
  Serious: Yes (Death, Hospitalization)
  Sender: FDA-Public Use
  Company Number: AU-SANOFI-SYNTHELABO-A01200708557

PATIENT
  Sex: Male

DRUGS (4)
  1. HEROIN [Suspect]
     Indication: OVERDOSE
     Dosage: UNK
     Route: 065
  2. ZOLPIDEM TARTRATE [Suspect]
     Indication: OVERDOSE
     Dosage: UNK
     Route: 065
  3. ZOLPIDEM TARTRATE [Suspect]
     Dosage: UNK
     Route: 065
  4. COCAINE [Suspect]
     Indication: OVERDOSE
     Dosage: UNK
     Route: 065

REACTIONS (3)
  - DEPENDENCE [None]
  - DRUG ABUSER [None]
  - LOSS OF CONSCIOUSNESS [None]
